FAERS Safety Report 23091536 (Version 3)
Quarter: 2023Q4

REPORT INFORMATION
  Report Type: Other
  Country: CA (occurrence: None)
  Receive Date: 20231020
  Receipt Date: 20231116
  Transmission Date: 20240109
  Serious: Yes (Hospitalization)
  Sender: FDA-Public Use
  Company Number: CA-ROCHE-3442185

PATIENT
  Sex: Male

DRUGS (10)
  1. OCREVUS [Suspect]
     Active Substance: OCRELIZUMAB
     Indication: Primary progressive multiple sclerosis
     Dosage: 300 MG AT DAY 0 AND 14, THEN 600 MG EVERY 6 MONTHS?LAST DOSE ON 22/JUN/2023
     Route: 042
     Dates: start: 20181128
  2. BACLOFEN [Concomitant]
     Active Substance: BACLOFEN
  3. BIOTIN [Concomitant]
     Active Substance: BIOTIN
     Route: 048
  4. CEFUROXIME [Concomitant]
     Active Substance: CEFUROXIME
     Route: 048
  5. CHOLECALCIFEROL [Concomitant]
     Active Substance: CHOLECALCIFEROL
  6. CLONAZEPAM [Concomitant]
     Active Substance: CLONAZEPAM
  7. METRONIDAZOLE [Concomitant]
     Active Substance: METRONIDAZOLE
  8. CYANOCOBALAMIN [Concomitant]
     Active Substance: CYANOCOBALAMIN
  9. PROPRANOLOL [Concomitant]
     Active Substance: PROPRANOLOL HYDROCHLORIDE
  10. ZOPICLONE [Concomitant]
     Active Substance: ZOPICLONE
     Route: 048

REACTIONS (1)
  - COVID-19 pneumonia [Recovered/Resolved]
